FAERS Safety Report 5290573-1 (Version None)
Quarter: 2007Q2

REPORT INFORMATION
  Report Type: 
  Country: None (occurrence: None)
  Receive Date: 20070409
  Receipt Date: 20070403
  Transmission Date: 20071010
  Serious: Yes (Hospitalization)
  Sender: FDA-Public Use
  Company Number: FR-AVENTIS-200710414FR

PATIENT
  Age: 73 Year
  Sex: Male

DRUGS (11)
  1. KETEK [Suspect]
     Indication: BRONCHOPNEUMOPATHY
     Route: 048
     Dates: start: 20070108, end: 20070116
  2. NOVONORM [Suspect]
     Indication: DIABETES MELLITUS
     Route: 048
     Dates: start: 20060920, end: 20070116
  3. CELECTOL                           /00806301/ [Concomitant]
     Indication: MYOCARDIAL INFARCTION
     Route: 048
  4. TRIATEC                            /00885601/ [Concomitant]
     Indication: MYOCARDIAL INFARCTION
     Route: 048
  5. PLAVIX [Concomitant]
     Indication: MYOCARDIAL INFARCTION
     Route: 048
  6. EFFEXOR [Concomitant]
     Route: 048
  7. SERETIDE [Concomitant]
     Indication: BRONCHOPNEUMOPATHY
     Route: 055
  8. VENTOLINE                          /00139501/ [Concomitant]
     Indication: BRONCHOPNEUMOPATHY
     Route: 055
  9. PRAXILENE [Concomitant]
     Route: 048
  10. OMEXEL [Concomitant]
     Indication: BENIGN PROSTATIC HYPERPLASIA
     Route: 048
  11. TANAKAN                            /01003103/ [Concomitant]
     Route: 048

REACTIONS (10)
  - BLOOD POTASSIUM INCREASED [None]
  - BUNDLE BRANCH BLOCK RIGHT [None]
  - C-REACTIVE PROTEIN INCREASED [None]
  - CONFUSIONAL STATE [None]
  - DRUG INEFFECTIVE [None]
  - DRUG INTERACTION [None]
  - FALL [None]
  - HYPOGLYCAEMIA [None]
  - LOSS OF CONSCIOUSNESS [None]
  - MALAISE [None]
